FAERS Safety Report 7355891-1 (Version None)
Quarter: 2011Q1

REPORT INFORMATION
  Report Type: 
  Country: None (occurrence: None)
  Receive Date: 20110316
  Receipt Date: 20101105
  Transmission Date: 20110831
  Serious: No
  Sender: FDA-Public Use
  Company Number: US-BAYER-201023556BCC

PATIENT
  Sex: Female

DRUGS (1)
  1. ALEVE [Suspect]
     Indication: LIMB INJURY
     Dosage: TOOK 2 ALEVE WHEN THE PAIN STARTED, AT 3 AM AND AT 7AM / COUNT BOTTLE UNKNOWN
     Route: 048
     Dates: start: 20101104

REACTIONS (1)
  - PAIN IN EXTREMITY [None]
